FAERS Safety Report 26011702 (Version 2)
Quarter: 2025Q4

REPORT INFORMATION
  Report Type: Spontaneous
  Country: IR (occurrence: IR)
  Receive Date: 20251107
  Receipt Date: 20251107
  Transmission Date: 20260119
  Serious: Yes (Death, Life-Threatening, Hospitalization, Other)
  Sender: SANDOZ
  Company Number: None

PATIENT
  Age: 17 Year
  Sex: Male

DRUGS (8)
  1. INFLIXIMAB [Suspect]
     Active Substance: INFLIXIMAB
     Indication: Takayasu^s arteritis
     Dosage: UNK
     Route: 065
  2. INFLIXIMAB [Suspect]
     Active Substance: INFLIXIMAB
     Indication: Central nervous system vasculitis
  3. MYCOPHENOLATE MOFETIL [Suspect]
     Active Substance: MYCOPHENOLATE MOFETIL
     Indication: Takayasu^s arteritis
     Dosage: 500 MG, Q12H
     Route: 065
  4. MYCOPHENOLATE MOFETIL [Suspect]
     Active Substance: MYCOPHENOLATE MOFETIL
     Indication: Central nervous system vasculitis
  5. METHYLPREDNISOLONE [Suspect]
     Active Substance: METHYLPREDNISOLONE
     Indication: Takayasu^s arteritis
     Dosage: 500 MG/DAY FOR 4 DAYS AND THEN PULSE THERAPY WAS GIVEN
     Route: 065
  6. METHYLPREDNISOLONE [Suspect]
     Active Substance: METHYLPREDNISOLONE
     Indication: Central nervous system vasculitis
  7. PREDNISOLONE [Suspect]
     Active Substance: PREDNISOLONE
     Indication: Central nervous system vasculitis
     Dosage: 10 MG, QD, TAPERED
     Route: 048
  8. PREDNISOLONE [Suspect]
     Active Substance: PREDNISOLONE
     Indication: Takayasu^s arteritis
     Dosage: 30 MG, QD
     Route: 048

REACTIONS (13)
  - COVID-19 [Fatal]
  - Nasal septum perforation [Fatal]
  - Nose deformity [Fatal]
  - Bradycardia [Fatal]
  - Cardiac arrest [Fatal]
  - Immunosuppression [Fatal]
  - Mucormycosis [Fatal]
  - Mouth ulceration [Unknown]
  - Loss of consciousness [Unknown]
  - Swelling face [Unknown]
  - Pneumonia cytomegaloviral [Unknown]
  - Pneumonia klebsiella [Unknown]
  - Epistaxis [Unknown]
